FAERS Safety Report 9286258 (Version 2)
Quarter: 2013Q2

REPORT INFORMATION
  Report Type: Spontaneous
  Country: US (occurrence: US)
  Receive Date: 20130513
  Receipt Date: 20130524
  Transmission Date: 20140414
  Serious: No
  Sender: FDA-Public Use
  Company Number: US-BAYER-2013-056716

PATIENT
  Age: 55 Year
  Sex: Female

DRUGS (5)
  1. BETASERON [Suspect]
     Indication: PRODUCT USED FOR UNKNOWN INDICATION
     Dosage: 0.25 MG, QOD
     Route: 058
     Dates: end: 2012
  2. AMPYRA [Suspect]
     Indication: PRODUCT USED FOR UNKNOWN INDICATION
     Dosage: 10 MG, BID
  3. AMITRIPTYLIN [Concomitant]
     Dosage: 100 MG, UNK
  4. NAPROXEN [Concomitant]
     Dosage: 250 MG, UNK
  5. TYSABRI [Concomitant]

REACTIONS (1)
  - Drug ineffective [None]
